FAERS Safety Report 6569815-8 (Version None)
Quarter: 2010Q1

REPORT INFORMATION
  Report Type: 
  Country: None (occurrence: None)
  Receive Date: 20100204
  Receipt Date: 20100126
  Transmission Date: 20100710
  Serious: Yes (Death, Other)
  Sender: FDA-Public Use
  Company Number: US-BAXTER-2009BH019829

PATIENT
  Age: 68 Year
  Sex: Male

DRUGS (48)
  1. HEPARIN SODIUM INJECTION [Suspect]
     Indication: VENA CAVA FILTER INSERTION
     Route: 042
     Dates: start: 20080126, end: 20080128
  2. HEPARIN SODIUM INJECTION [Suspect]
     Indication: OESOPHAGOGASTRODUODENOSCOPY
     Route: 042
     Dates: start: 20080126, end: 20080128
  3. HEPARIN SODIUM INJECTION [Suspect]
     Indication: BIOPSY LUNG
     Route: 042
     Dates: start: 20080126, end: 20080128
  4. HEPARIN SODIUM INJECTION [Suspect]
     Indication: PHYSICAL EXAMINATION
     Route: 042
     Dates: start: 20080126, end: 20080128
  5. HEPARIN SODIUM INJECTION [Suspect]
     Route: 042
     Dates: start: 20080223, end: 20080223
  6. HEPARIN SODIUM INJECTION [Suspect]
     Route: 042
     Dates: start: 20080223, end: 20080223
  7. HEPARIN SODIUM INJECTION [Suspect]
     Route: 042
     Dates: start: 20080223, end: 20080223
  8. HEPARIN SODIUM INJECTION [Suspect]
     Route: 042
     Dates: start: 20080223, end: 20080223
  9. HEPARIN SODIUM INJECTION [Suspect]
     Route: 042
     Dates: start: 20080428, end: 20080502
  10. HEPARIN SODIUM INJECTION [Suspect]
     Route: 042
     Dates: start: 20080428, end: 20080502
  11. HEPARIN SODIUM INJECTION [Suspect]
     Route: 042
     Dates: start: 20080428, end: 20080502
  12. HEPARIN SODIUM INJECTION [Suspect]
     Route: 042
     Dates: start: 20080428, end: 20080502
  13. ASPIRIN [Concomitant]
     Indication: DRUG USE FOR UNKNOWN INDICATION
     Route: 065
  14. CAPTOPRIL [Concomitant]
     Indication: DRUG USE FOR UNKNOWN INDICATION
     Route: 048
  15. PLAVIX [Concomitant]
     Indication: DRUG USE FOR UNKNOWN INDICATION
     Route: 065
  16. DEXAMETHASONE [Concomitant]
     Indication: DRUG USE FOR UNKNOWN INDICATION
     Route: 065
  17. PANTOPRAZOLE [Concomitant]
     Indication: DRUG USE FOR UNKNOWN INDICATION
     Route: 065
  18. LEVAQUIN [Concomitant]
     Indication: DRUG USE FOR UNKNOWN INDICATION
     Route: 065
  19. MAGNESIUM [Concomitant]
     Indication: DRUG USE FOR UNKNOWN INDICATION
     Route: 065
  20. SIMVASTATIN [Concomitant]
     Indication: DRUG USE FOR UNKNOWN INDICATION
     Route: 065
  21. ALDACTONE [Concomitant]
     Indication: DRUG USE FOR UNKNOWN INDICATION
     Route: 065
  22. LOPRESSOR [Concomitant]
     Indication: DRUG USE FOR UNKNOWN INDICATION
     Route: 065
  23. BUMEX [Concomitant]
     Indication: DRUG USE FOR UNKNOWN INDICATION
     Route: 065
  24. ALBUTEROL [Concomitant]
     Indication: DRUG USE FOR UNKNOWN INDICATION
     Route: 065
  25. ATROVENT [Concomitant]
     Indication: DRUG USE FOR UNKNOWN INDICATION
     Route: 065
  26. DIGOXIN [Concomitant]
     Indication: DRUG USE FOR UNKNOWN INDICATION
     Route: 065
  27. MECLIZINE [Concomitant]
     Indication: DRUG USE FOR UNKNOWN INDICATION
     Route: 065
  28. TYLENOL-500 [Concomitant]
     Indication: DRUG USE FOR UNKNOWN INDICATION
     Route: 065
  29. XANAX [Concomitant]
     Indication: DRUG USE FOR UNKNOWN INDICATION
     Route: 065
  30. ATROPINE [Concomitant]
     Indication: DRUG USE FOR UNKNOWN INDICATION
     Route: 065
  31. DULCOLAX [Concomitant]
     Indication: DRUG USE FOR UNKNOWN INDICATION
     Route: 065
  32. MAALOX                                  /USA/ [Concomitant]
     Indication: DRUG USE FOR UNKNOWN INDICATION
     Route: 065
  33. VERSED [Concomitant]
     Indication: DRUG USE FOR UNKNOWN INDICATION
     Route: 065
  34. MILK OF MAGNESIA TAB [Concomitant]
     Indication: DRUG USE FOR UNKNOWN INDICATION
     Route: 065
  35. MORPHINE [Concomitant]
     Indication: DRUG USE FOR UNKNOWN INDICATION
     Route: 065
  36. NITROSTAT [Concomitant]
     Indication: DRUG USE FOR UNKNOWN INDICATION
     Route: 065
  37. SENOKOT                                 /USA/ [Concomitant]
     Indication: DRUG USE FOR UNKNOWN INDICATION
     Route: 065
  38. AMBIEN [Concomitant]
     Indication: DRUG USE FOR UNKNOWN INDICATION
     Route: 065
  39. REGLAN [Concomitant]
     Indication: DRUG USE FOR UNKNOWN INDICATION
     Route: 065
  40. NOVOLOG [Concomitant]
     Indication: DRUG USE FOR UNKNOWN INDICATION
     Route: 065
  41. XOPENEX [Concomitant]
     Indication: DRUG USE FOR UNKNOWN INDICATION
     Route: 065
  42. LOPRESSOR [Concomitant]
     Route: 065
  43. KEPPRA [Concomitant]
     Indication: DRUG USE FOR UNKNOWN INDICATION
     Route: 065
  44. FORTAZ [Concomitant]
     Indication: DRUG USE FOR UNKNOWN INDICATION
     Route: 065
  45. BUMEX [Concomitant]
     Route: 065
  46. SOLU-MEDROL [Concomitant]
     Indication: DRUG USE FOR UNKNOWN INDICATION
     Route: 065
  47. SODIUM CHLORIDE [Concomitant]
     Indication: DRUG USE FOR UNKNOWN INDICATION
     Route: 065
  48. TEARISOL [Concomitant]
     Indication: DRUG USE FOR UNKNOWN INDICATION
     Route: 065

REACTIONS (18)
  - ABDOMINAL PAIN UPPER [None]
  - ACUTE RESPIRATORY FAILURE [None]
  - CHRONIC OBSTRUCTIVE PULMONARY DISEASE [None]
  - CHRONIC RESPIRATORY FAILURE [None]
  - CONVULSION [None]
  - DIZZINESS [None]
  - DYSPNOEA [None]
  - ENCEPHALOPATHY [None]
  - GAIT DISTURBANCE [None]
  - HEPATIC FAILURE [None]
  - HYPERSENSITIVITY [None]
  - LUNG ADENOCARCINOMA METASTATIC [None]
  - LUNG CARCINOMA CELL TYPE UNSPECIFIED STAGE IV [None]
  - PNEUMONIA [None]
  - PNEUMONITIS [None]
  - RENAL FAILURE ACUTE [None]
  - STREPTOCOCCAL SEPSIS [None]
  - THROMBOSIS [None]
